FAERS Safety Report 10395526 (Version 1)
Quarter: 2014Q3

REPORT INFORMATION
  Report Type: Spontaneous
  Country: US (occurrence: US)
  Receive Date: 20140820
  Receipt Date: 20140820
  Transmission Date: 20150326
  Serious: No
  Sender: FDA-Public Use
  Company Number: US-BAYER-2014-121530

PATIENT
  Age: 56 Year
  Sex: Male
  Weight: 70 kg

DRUGS (3)
  1. ALEVE [Suspect]
     Active Substance: NAPROXEN SODIUM
     Indication: BACK PAIN
     Dosage: 6 DF, ONCE
     Dates: start: 20140811
  2. ALEVE [Suspect]
     Active Substance: NAPROXEN SODIUM
     Indication: BACK PAIN
     Dosage: 6 DF, UNK
     Route: 048
     Dates: start: 20140810, end: 20140810
  3. ALEVE [Suspect]
     Active Substance: NAPROXEN SODIUM
     Indication: BACK PAIN
     Dosage: 3 DF,AT NIGHT
     Dates: start: 20140809, end: 20140809

REACTIONS (4)
  - Hyperhidrosis [Not Recovered/Not Resolved]
  - Anxiety [Not Recovered/Not Resolved]
  - Extra dose administered [Unknown]
  - Extra dose administered [Unknown]

NARRATIVE: CASE EVENT DATE: 20140810
